FAERS Safety Report 6427791-2 (Version None)
Quarter: 2009Q4

REPORT INFORMATION
  Report Type: 
  Country: None (occurrence: None)
  Receive Date: 20091104
  Receipt Date: 20091104
  Transmission Date: 20100525
  Serious: Yes (Other)
  Sender: FDA-Public Use
  Company Number: None

PATIENT
  Age: 52 Year
  Sex: Male
  Weight: 91.3 kg

DRUGS (35)
  1. THYMOGLOBULIN [Suspect]
     Indication: IMMUNOSUPPRESSANT DRUG THERAPY
     Dosage: 200MG
     Dates: start: 20090926, end: 20090929
  2. THYMOGLOBULIN [Suspect]
  3. ESOMEPRAZOLE MAGNESIUM [Concomitant]
  4. IPRATROPIUM [Concomitant]
  5. METOPROLOL [Concomitant]
  6. MORPHINE [Concomitant]
  7. MULTI-VITAMIN [Concomitant]
  8. MYCOPHENOLATE MOFETIL [Concomitant]
  9. NALOXONE [Concomitant]
  10. ALBUTEROL [Concomitant]
  11. ASPIRIN [Concomitant]
  12. DIPHENHYDRAMINE [Concomitant]
  13. DOPAMINE HCL [Concomitant]
  14. EPOETIN ALFA [Concomitant]
  15. NYSTATIN [Concomitant]
  16. ONDANSETRON [Concomitant]
  17. POLYETHYLENE GLYCOL [Concomitant]
  18. PROMETHAZINE [Concomitant]
  19. SENNA [Concomitant]
  20. SODIUM BICARBONATE + NACL [Concomitant]
  21. SODIUM CHLORIDE [Concomitant]
  22. TACROLIMUS [Concomitant]
  23. BACTRIM [Concomitant]
  24. VALGANCICLOVIR HCL [Concomitant]
  25. ALBUMIN (HUMAN) [Concomitant]
  26. BACITRACIN [Concomitant]
  27. CEFOTETAN [Concomitant]
  28. FENTANYL CITRATE [Concomitant]
  29. FUROSEMIDE [Concomitant]
  30. HEPARIN [Concomitant]
  31. HYDROMORPHONE HCL [Concomitant]
  32. LEVALBUTEROL HCL [Concomitant]
  33. LIDOCAINE [Concomitant]
  34. MAGNESIUM SULFATE [Concomitant]
  35. PAPAVERINE [Concomitant]

REACTIONS (1)
  - PRODUCT QUALITY ISSUE [None]
